FAERS Safety Report 6855023-X (Version None)
Quarter: 2010Q3

REPORT INFORMATION
  Report Type: 
  Country: None (occurrence: None)
  Receive Date: 20100717
  Receipt Date: 20080411
  Transmission Date: 20110219
  Serious: Yes (Disabling, Other)
  Sender: FDA-Public Use
  Company Number: US-PFIZER INC-2007107277

PATIENT
  Sex: Female
  Weight: 62.6 kg

DRUGS (13)
  1. CHANTIX [Suspect]
     Indication: CHRONIC OBSTRUCTIVE PULMONARY DISEASE
     Route: 048
     Dates: start: 20070216, end: 20070101
  2. CHANTIX [Suspect]
     Indication: TOBACCO USER
  3. CHANTIX [Suspect]
     Indication: SMOKING CESSATION THERAPY
  4. TOPAMAX [Suspect]
     Indication: WEIGHT DECREASED
     Dates: start: 20070101, end: 20070101
  5. TOPAMAX [Suspect]
     Indication: OBESITY
  6. TOPAMAX [Suspect]
     Indication: ARTHRALGIA
  7. VYTORIN [Concomitant]
     Indication: BLOOD CHOLESTEROL
  8. PROVERA [Concomitant]
  9. ALLEGRA [Concomitant]
  10. OMEPRAZOLE [Concomitant]
  11. ALLEGRA D 24 HOUR [Concomitant]
  12. SYNTHROID [Concomitant]
  13. PREMARIN [Concomitant]

REACTIONS (6)
  - DENTAL CARE [None]
  - GINGIVAL OPERATION [None]
  - GINGIVITIS [None]
  - GLOSSODYNIA [None]
  - STOMATITIS [None]
  - WEIGHT INCREASED [None]
